FAERS Safety Report 4909358-8 (Version None)
Quarter: 2006Q1

REPORT INFORMATION
  Report Type: 
  Country: None (occurrence: None)
  Receive Date: 20060213
  Receipt Date: 20060123
  Transmission Date: 20060701
  Serious: Yes (Other)
  Sender: FDA-Public Use
  Company Number: SE-GLAXOSMITHKLINE-B0408885A

PATIENT
  Age: 57 Year
  Sex: Male

DRUGS (5)
  1. AVANDAMET [Suspect]
     Indication: DRUG USE FOR UNKNOWN INDICATION
     Route: 065
     Dates: start: 20051111
  2. DERMOVATE [Concomitant]
  3. DAIVONEX [Concomitant]
  4. CO-APROVEL [Concomitant]
  5. NAPROSYN [Concomitant]

REACTIONS (1)
  - PSORIASIS [None]
